FAERS Safety Report 6266341-0 (Version None)
Quarter: 2009Q3

REPORT INFORMATION
  Report Type: 
  Country: None (occurrence: None)
  Receive Date: 20090709
  Receipt Date: 20090624
  Transmission Date: 20100115
  Serious: Yes (Hospitalization)
  Sender: FDA-Public Use
  Company Number: 2009001888

PATIENT
  Age: 46 Year
  Sex: Female

DRUGS (1)
  1. TARCEVA [Suspect]
     Indication: LUNG NEOPLASM MALIGNANT
     Dosage: (QD), ORAL
     Route: 048

REACTIONS (6)
  - ASTHENIA [None]
  - CONVULSION [None]
  - DRY SKIN [None]
  - FATIGUE [None]
  - HYPERSOMNIA [None]
  - RESPIRATORY ARREST [None]
